FAERS Safety Report 6206066-0 (Version None)
Quarter: 2009Q2

REPORT INFORMATION
  Report Type: 
  Country: None (occurrence: None)
  Receive Date: 20090526
  Receipt Date: 20090512
  Transmission Date: 20091009
  Serious: Yes (Hospitalization)
  Sender: FDA-Public Use
  Company Number: 235297K09USA

PATIENT
  Age: 44 Year
  Sex: Female
  Weight: 78 kg

DRUGS (13)
  1. REBIF [Suspect]
     Indication: MULTIPLE SCLEROSIS
     Dosage: 44 MCG, 3 IN 1 WEEKS, SUBCUTANEOUS
     Route: 058
     Dates: start: 20080414, end: 20090501
  2. MESTINON [Concomitant]
  3. CELLCEPT [Concomitant]
  4. LITHIUM CARBONATE [Concomitant]
  5. KLONOPIN [Concomitant]
  6. PREDNISONE (PREDNISONE /00044701/) [Concomitant]
  7. IMITREX [Concomitant]
  8. PREVACID [Concomitant]
  9. RESTORIL [Concomitant]
  10. AMANTADINE HCL [Concomitant]
  11. MIRALAX [Concomitant]
  12. REMERON [Concomitant]
  13. FIORICET [Concomitant]

REACTIONS (8)
  - ANOREXIA [None]
  - ANXIETY [None]
  - CONVERSION DISORDER [None]
  - CRYING [None]
  - DEPRESSION [None]
  - FEAR [None]
  - SUICIDAL IDEATION [None]
  - WEIGHT DECREASED [None]
